FAERS Safety Report 10057912 (Version 1)
Quarter: 2014Q2

REPORT INFORMATION
  Report Type: Report from Study
  Country: AU (occurrence: AU)
  Receive Date: 20140404
  Receipt Date: 20140404
  Transmission Date: 20141212
  Serious: Yes (Hospitalization, Other)
  Sender: FDA-Public Use
  Company Number: PHHY2014AU037057

PATIENT
  Age: 75 Year
  Sex: Male

DRUGS (20)
  1. OXALIPLATIN [Suspect]
     Indication: GASTROOESOPHAGEAL CANCER
     Dosage: 165 MG, QW2
     Route: 042
     Dates: start: 20131106
  2. CALCIUM FOLINATE [Suspect]
     Indication: GASTROOESOPHAGEAL CANCER
     Dosage: 780 MG, QW2
     Route: 042
     Dates: start: 20131106
  3. 5-FLUOROURACIL [Suspect]
     Indication: GASTROOESOPHAGEAL CANCER
     Dosage: 780 MG, QW2
     Route: 040
     Dates: start: 20131106
  4. 5-FLUOROURACIL [Suspect]
     Dosage: 4700 MG, QW2
     Route: 041
     Dates: start: 20131106
  5. PERINDOPRIL ERBUMINE [Concomitant]
     Indication: HYPERTENSION
     Route: 048
  6. METOPROLOL TARTRATE [Concomitant]
     Indication: HYPERTENSION
     Route: 048
  7. METFORMIN HYDROCHLORIDE [Concomitant]
     Indication: TYPE 2 DIABETES MELLITUS
     Dosage: 1 G, UNK
     Route: 048
  8. ROSUVASTATIN [Concomitant]
     Indication: HYPERCHOLESTEROLAEMIA
     Dosage: 20 MG, UNK
     Route: 048
  9. ONDANSETRON HYDROCHLORIDE [Concomitant]
     Indication: NAUSEA
     Dosage: 8 MG, UNK
     Route: 048
     Dates: start: 20131106
  10. ONDANSETRON HYDROCHLORIDE [Concomitant]
     Indication: VOMITING
  11. NOVORAPID [Concomitant]
     Indication: HYPERGLYCAEMIA
     Dosage: 4 DF, UNK
     Route: 058
     Dates: start: 20131106
  12. NOVORAPID [Concomitant]
     Dosage: 12 DF, UNK
     Route: 058
     Dates: start: 20131106
  13. TEMAZEPAM [Concomitant]
     Indication: INSOMNIA
     Dosage: 10 MG, UNK
     Route: 048
     Dates: start: 20131202
  14. CLOTRIMAZOLE [Concomitant]
     Indication: RASH
     Dosage: 2.4 %, UNK
     Route: 061
     Dates: start: 20131202
  15. OXYCODONE HYDROCHLORIDE [Concomitant]
     Indication: GOUT
     Dosage: 5 MG, UNK
     Route: 048
     Dates: start: 20131216
  16. COLCHICINE [Concomitant]
     Indication: GOUT
     Dosage: 0.5 MG, UNK
     Route: 048
     Dates: start: 20131216
  17. AMPHOTERICIN B [Concomitant]
     Indication: ORAL CANDIDIASIS
     Dosage: 1 DF, UNK
     Route: 048
     Dates: start: 20131224
  18. LOPERAMIDE HYDROCHLORIDE [Concomitant]
     Indication: DIARRHOEA
     Dosage: 1 DF, UNK
     Route: 048
     Dates: start: 20131218
  19. DEXAMETHASONE [Concomitant]
     Indication: NAUSEA
     Dosage: 4 MG, UNK
     Route: 048
     Dates: start: 20131204
  20. DEXAMETHASONE [Concomitant]
     Indication: VOMITING

REACTIONS (6)
  - Diarrhoea [Recovered/Resolved]
  - Nausea [Unknown]
  - Vomiting [Unknown]
  - Malaise [Unknown]
  - Neutropenia [Unknown]
  - Hypophagia [Unknown]
